FAERS Safety Report 11750742 (Version 1)
Quarter: 2015Q4

REPORT INFORMATION
  Report Type: Spontaneous
  Country: US (occurrence: US)
  Receive Date: 20151118
  Receipt Date: 20151118
  Transmission Date: 20160304
  Serious: Yes (Hospitalization)
  Sender: FDA-Public Use
  Company Number: US-PURDUE PHARMA-USA-2015-0127306

PATIENT
  Sex: Female

DRUGS (2)
  1. OXYCONTIN [Suspect]
     Active Substance: OXYCODONE HYDROCHLORIDE
     Route: 048
  2. OXYCONTIN [Suspect]
     Active Substance: OXYCODONE HYDROCHLORIDE
     Indication: ANALGESIC THERAPY
     Dosage: 20 MG (1-4 TABLETS), BID
     Route: 048
     Dates: start: 2003

REACTIONS (4)
  - Intestinal obstruction [Not Recovered/Not Resolved]
  - Drug effect decreased [Unknown]
  - Gastrointestinal surgery [Unknown]
  - Constipation [Recovered/Resolved]

NARRATIVE: CASE EVENT DATE: 200401
